FAERS Safety Report 7039370-7 (Version None)
Quarter: 2010Q4

REPORT INFORMATION
  Report Type: 
  Country: None (occurrence: None)
  Receive Date: 20101007
  Receipt Date: 20100804
  Transmission Date: 20110411
  Serious: Yes (Life-Threatening)
  Sender: FDA-Public Use
  Company Number: GAM-179-10-DE

PATIENT
  Age: 76 Year
  Sex: Male

DRUGS (1)
  1. OCTAGAM [Suspect]
     Indication: DEMYELINATING POLYNEUROPATHY
     Dosage: 15 G
     Route: 042
     Dates: start: 20100609, end: 20100609

REACTIONS (6)
  - CEREBRAL ISCHAEMIA [None]
  - DISTURBANCE IN ATTENTION [None]
  - GENERAL PHYSICAL HEALTH DETERIORATION [None]
  - HEPATIC INFARCTION [None]
  - PARESIS [None]
  - SPLENIC INFARCTION [None]
